FAERS Safety Report 4849235-4 (Version None)
Quarter: 2005Q4

REPORT INFORMATION
  Report Type: 
  Country: None (occurrence: None)
  Receive Date: 20051209
  Receipt Date: 20051130
  Transmission Date: 20060501
  Serious: Yes (Other)
  Sender: FDA-Public Use
  Company Number: SE-BRISTOL-MYERS SQUIBB COMPANY-13200415

PATIENT
  Age: 50 Year
  Sex: Female

DRUGS (5)
  1. VEPESID [Suspect]
     Indication: CHORIOCARCINOMA
     Dates: start: 19920901, end: 19930201
  2. METHOTREXATE [Suspect]
     Indication: CHORIOCARCINOMA
     Dates: start: 19920901, end: 19930201
  3. COSMEGEN [Suspect]
     Indication: CHORIOCARCINOMA
     Route: 042
     Dates: start: 19920901, end: 19930201
  4. CYKLOFOSFAMID ORION [Suspect]
     Indication: CHORIOCARCINOMA
     Dates: start: 19920901, end: 19930201
  5. ONCOVIN [Suspect]
     Indication: CHORIOCARCINOMA
     Route: 042
     Dates: start: 19920901, end: 19930201

REACTIONS (3)
  - OEDEMA PERIPHERAL [None]
  - PAIN [None]
  - PARAESTHESIA [None]
